FAERS Safety Report 9112619 (Version 1)
Quarter: 2013Q1

REPORT INFORMATION
  Report Type: Report from Study
  Country: FR (occurrence: FR)
  Receive Date: 20130211
  Receipt Date: 20130211
  Transmission Date: 20140127
  Serious: Yes (Hospitalization)
  Sender: FDA-Public Use
  Company Number: FR-ROCHE-1189598

PATIENT
  Sex: Male

DRUGS (4)
  1. PEG-INTERFERON ALFA 2A [Suspect]
     Indication: HEPATITIS B
     Route: 065
     Dates: start: 20120525
  2. BARACLUDE [Suspect]
     Indication: HEPATITIS B
     Route: 065
     Dates: start: 20071010
  3. XALATAN [Concomitant]
     Indication: GLAUCOMA
     Route: 065
  4. SOTALEX [Concomitant]
     Indication: ARRHYTHMIA
     Route: 065

REACTIONS (1)
  - Cataract [Unknown]
